FAERS Safety Report 9787941 (Version 2)
Quarter: 2013Q4

REPORT INFORMATION
  Report Type: Spontaneous
  Country: US (occurrence: US)
  Receive Date: 20131230
  Receipt Date: 20131230
  Transmission Date: 20140711
  Serious: Yes (Other)
  Sender: FDA-Public Use
  Company Number: US-SA-2013SA135660

PATIENT
  Age: 62 Year
  Sex: Male

DRUGS (2)
  1. LANTUS SOLOSTAR [Suspect]
     Indication: TYPE 2 DIABETES MELLITUS
     Dosage: START DATE: 5 TO 6 MONTHS DOSE:10 UNIT(S)
     Route: 051
     Dates: start: 2013
  2. SOLOSTAR [Concomitant]
     Indication: TYPE 2 DIABETES MELLITUS

REACTIONS (6)
  - Road traffic accident [Unknown]
  - Complex regional pain syndrome [Unknown]
  - Neuropathy peripheral [Unknown]
  - Poor quality sleep [Unknown]
  - Decreased appetite [Unknown]
  - Drug dose omission [Unknown]
